FAERS Safety Report 23083843 (Version 1)
Quarter: 2023Q4

REPORT INFORMATION
  Report Type: Report from Study
  Country: US (occurrence: US)
  Receive Date: 20231019
  Receipt Date: 20231019
  Transmission Date: 20240110
  Serious: No
  Sender: FDA-Public Use
  Company Number: US-MIRM-000374

PATIENT
  Sex: Female
  Weight: 24.494 kg

DRUGS (5)
  1. LIVMARLI [Suspect]
     Active Substance: MARALIXIBAT CHLORIDE
     Indication: Pruritus
     Dosage: 0.9 MILLILITER, QD
     Route: 048
     Dates: start: 20211025
  2. HYDROXYZINE [Concomitant]
     Active Substance: HYDROXYZINE HYDROCHLORIDE
     Indication: Product used for unknown indication
     Dosage: 10 MILLIGRAM, QD
  3. URSODIOL [Concomitant]
     Active Substance: URSODIOL
     Indication: Product used for unknown indication
     Dosage: 375 MILLIGRAM, BID
  4. VITAMIN E [Concomitant]
     Active Substance: .ALPHA.-TOCOPHEROL
     Indication: Product used for unknown indication
     Dosage: 200 INTERNATIONAL UNIT, QD
  5. GUANFACINE [GUANFACINE HYDROCHLORIDE] [Concomitant]
     Indication: Product used for unknown indication
     Dosage: 1 MILLIGRAM, QD

REACTIONS (2)
  - Hepatic enzyme increased [Unknown]
  - Cholelithiasis [Unknown]
